FAERS Safety Report 25130877 (Version 1)
Quarter: 2025Q1

REPORT INFORMATION
  Report Type: Report from Study
  Country: US (occurrence: US)
  Receive Date: 20250327
  Receipt Date: 20250327
  Transmission Date: 20250409
  Serious: Yes (Other)
  Sender: ABBVIE
  Company Number: US-ABBVIE-6194925

PATIENT
  Age: 51 Year
  Sex: Female

DRUGS (1)
  1. HUMIRA [Suspect]
     Active Substance: ADALIMUMAB
     Indication: Product used for unknown indication
     Route: 058
     Dates: start: 20170922

REACTIONS (4)
  - Cataract operation [Recovering/Resolving]
  - Intraocular pressure test abnormal [Recovering/Resolving]
  - Eye infection [Recovering/Resolving]
  - Dacryostenosis acquired [Recovering/Resolving]
